FAERS Safety Report 23666914 (Version 1)
Quarter: 2024Q1

REPORT INFORMATION
  Report Type: Spontaneous
  Country: US (occurrence: US)
  Receive Date: 20240325
  Receipt Date: 20240325
  Transmission Date: 20240409
  Serious: No
  Sender: FDA-Public Use
  Company Number: US-JNJFOC-20240357721

PATIENT
  Sex: Male

DRUGS (1)
  1. INVEGA [Suspect]
     Active Substance: PALIPERIDONE
     Indication: Attention deficit hyperactivity disorder
     Dosage: 3 MG EVERY MORNING
     Route: 048

REACTIONS (2)
  - Hyperphagia [Unknown]
  - Off label use [Unknown]
